FAERS Safety Report 16874156 (Version 2)
Quarter: 2019Q4

REPORT INFORMATION
  Report Type: Spontaneous
  Country: US (occurrence: US)
  Receive Date: 20191001
  Receipt Date: 20191031
  Transmission Date: 20200122
  Serious: Yes (Other)
  Sender: FDA-Public Use
  Company Number: US-GLAXOSMITHKLINE-US2019173454

PATIENT
  Age: 71 Year
  Sex: Male

DRUGS (1)
  1. SENSODYNE EXTRA WHITENING [Suspect]
     Active Substance: POTASSIUM NITRATE\SODIUM FLUORIDE
     Indication: HYPERAESTHESIA TEETH
     Dosage: USING DAILY FOR 5 YEARS, BID
     Route: 048
     Dates: start: 20190920

REACTIONS (7)
  - Choking [Recovered/Resolved]
  - Nausea [Recovered/Resolved]
  - Oropharyngeal pain [Recovered/Resolved]
  - Throat irritation [Recovered/Resolved]
  - Retching [Recovered/Resolved]
  - Nonspecific reaction [Recovered/Resolved]
  - Salivary hypersecretion [Recovered/Resolved]

NARRATIVE: CASE EVENT DATE: 20190923
